FAERS Safety Report 12772951 (Version 1)
Quarter: 2016Q3

REPORT INFORMATION
  Report Type: Spontaneous
  Country: US (occurrence: US)
  Receive Date: 20160922
  Receipt Date: 20160922
  Transmission Date: 20161109
  Serious: Yes (Other)
  Sender: FDA-Public Use
  Company Number: US-NOVOPROD-510528

PATIENT
  Age: 69 Year
  Sex: Male

DRUGS (1)
  1. NOVOLOG MIX 70/30 [Suspect]
     Active Substance: INSULIN ASPART
     Indication: TYPE 2 DIABETES MELLITUS
     Dosage: 30U QAM + 20U QPM
     Route: 058

REACTIONS (3)
  - Decubitus ulcer [Recovering/Resolving]
  - Hypoglycaemia [Recovered/Resolved]
  - Diabetic foot [Recovering/Resolving]

NARRATIVE: CASE EVENT DATE: 201606
